FAERS Safety Report 18549777 (Version 2)
Quarter: 2020Q4

REPORT INFORMATION
  Report Type: Spontaneous
  Country: US (occurrence: US)
  Receive Date: 20201126
  Receipt Date: 20201201
  Transmission Date: 20210114
  Serious: Yes (Other)
  Sender: FDA-Public Use
  Company Number: US-TEVA-2020-US-1851834

PATIENT
  Age: 74 Year
  Sex: Male

DRUGS (2)
  1. NEFAZODONE [Suspect]
     Active Substance: NEFAZODONE
     Route: 065
     Dates: start: 2020
  2. NEFAZODONE [Suspect]
     Active Substance: NEFAZODONE
     Indication: DEPRESSION
     Route: 065
     Dates: start: 2002

REACTIONS (3)
  - Therapy interrupted [Unknown]
  - Product availability issue [Unknown]
  - Erectile dysfunction [Recovered/Resolved]
